FAERS Safety Report 21263632 (Version 4)
Quarter: 2025Q1

REPORT INFORMATION
  Report Type: Spontaneous
  Country: IT (occurrence: IT)
  Receive Date: 20220829
  Receipt Date: 20250121
  Transmission Date: 20250408
  Serious: Yes (Other)
  Sender: AUROBINDO
  Company Number: IT-STADA-254310

PATIENT
  Age: 46 Year
  Sex: Male

DRUGS (17)
  1. FLUCONAZOLE [Suspect]
     Active Substance: FLUCONAZOLE
     Indication: Candida infection
     Dosage: 400 MILLIGRAM, ONCE A DAY
     Route: 065
  2. FLUCONAZOLE [Suspect]
     Active Substance: FLUCONAZOLE
     Indication: Antifungal prophylaxis
  3. VORICONAZOLE [Suspect]
     Active Substance: VORICONAZOLE
     Indication: Candida infection
     Route: 065
  4. VORICONAZOLE [Suspect]
     Active Substance: VORICONAZOLE
     Indication: Antifungal prophylaxis
  5. ANIDULAFUNGIN [Suspect]
     Active Substance: ANIDULAFUNGIN
     Indication: Antifungal prophylaxis
     Route: 065
  6. AMPHOTERICIN B [Suspect]
     Active Substance: AMPHOTERICIN B
     Indication: Candida infection
     Route: 065
  7. AMPHOTERICIN B [Suspect]
     Active Substance: AMPHOTERICIN B
     Indication: Pneumocystis jirovecii infection
  8. CASPOFUNGIN [Suspect]
     Active Substance: CASPOFUNGIN
     Indication: Candida infection
     Dosage: 70 MILLIGRAM, ONCE A DAY
     Route: 065
  9. CASPOFUNGIN [Suspect]
     Active Substance: CASPOFUNGIN
     Indication: Antifungal prophylaxis
     Dosage: 50 MILLIGRAM, ONCE A DAY(THE PATIENT RECEIVED CASPOFUNGIN 50MG DAILY FOR ONE WEEK )
     Route: 065
  10. MICAFUNGIN SODIUM [Suspect]
     Active Substance: MICAFUNGIN SODIUM
     Indication: Antifungal prophylaxis
     Route: 065
  11. POSACONAZOLE [Suspect]
     Active Substance: POSACONAZOLE
     Indication: Antifungal prophylaxis
     Route: 065
  12. POSACONAZOLE [Suspect]
     Active Substance: POSACONAZOLE
     Indication: Treatment noncompliance
  13. VORICONAZOLE [Suspect]
     Active Substance: VORICONAZOLE
     Indication: Eye infection
     Dosage: 200 MILLIGRAM, TWO TIMES A DAY
  14. VORICONAZOLE [Suspect]
     Active Substance: VORICONAZOLE
     Indication: Pneumocystis jirovecii infection
  15. ISAVUCONAZOLE [Suspect]
     Active Substance: ISAVUCONAZOLE
     Indication: Candida infection
     Dosage: 200 MILLIGRAM, ONCE A DAY
     Route: 065
  16. CYTARABINE [Concomitant]
     Active Substance: CYTARABINE
     Indication: Myelodysplastic syndrome
     Route: 065
  17. DAUNORUBICIN [Concomitant]
     Active Substance: DAUNORUBICIN
     Indication: Acute myeloid leukaemia
     Route: 065

REACTIONS (3)
  - Drug resistance [Recovering/Resolving]
  - Off label use [Unknown]
  - Drug ineffective [Recovered/Resolved]
